FAERS Safety Report 4522198-7 (Version None)
Quarter: 2004Q4

REPORT INFORMATION
  Report Type: 
  Country: None (occurrence: None)
  Receive Date: 20041207
  Receipt Date: 20041118
  Transmission Date: 20050328
  Serious: Yes (Hospitalization)
  Sender: FDA-Public Use
  Company Number: US_000745907

PATIENT
  Age: 75 Year
  Sex: Female
  Weight: 42 kg

DRUGS (12)
  1. EVISTA [Suspect]
     Indication: OSTEOPOROSIS
     Dosage: 60 MG/1 DAY
     Dates: start: 20000501, end: 20040601
  2. FORTEO [Suspect]
     Indication: OSTEOPOROSIS
     Dosage: 20 UG DAY
     Dates: start: 20040921, end: 20041118
  3. ENBREL [Concomitant]
  4. METHOTREXATE [Concomitant]
  5. PLAQUENIL [Concomitant]
  6. PREVACID [Concomitant]
  7. ZANTAC [Concomitant]
  8. MULTI-VITAMIN [Concomitant]
  9. VITAMIN E [Concomitant]
  10. VITAMIN C [Concomitant]
  11. CALCIUM [Concomitant]
  12. VITAMIN D [Concomitant]

REACTIONS (11)
  - ARTHRALGIA [None]
  - BODY HEIGHT DECREASED [None]
  - BONE EROSION [None]
  - DIZZINESS [None]
  - FALL [None]
  - FATIGUE [None]
  - HIP FRACTURE [None]
  - HYPERTROPHY BREAST [None]
  - PHARMACEUTICAL PRODUCT COMPLAINT [None]
  - PRURITUS [None]
  - RASH MACULO-PAPULAR [None]
